FAERS Safety Report 9542602 (Version 2)
Quarter: 2013Q4

REPORT INFORMATION
  Report Type: Spontaneous
  Country: US (occurrence: US)
  Receive Date: 20130923
  Receipt Date: 20131120
  Transmission Date: 20140711
  Serious: No
  Sender: FDA-Public Use
  Company Number: US-PFIZER INC-2013270268

PATIENT
  Age: 95 Year
  Sex: Female

DRUGS (4)
  1. GABAPENTIN [Suspect]
     Indication: HERPES ZOSTER
     Dosage: 100 MG, 1X/DAY
     Dates: start: 2013, end: 2013
  2. GABAPENTIN [Suspect]
     Dosage: 1800 MG, 1X/DAY
     Dates: start: 2013, end: 2013
  3. GABAPENTIN [Suspect]
     Dosage: 100 MG, 1X/DAY
     Dates: start: 2013, end: 2013
  4. LYRICA [Suspect]
     Indication: HERPES ZOSTER
     Dosage: 75 MG, 1X/DAY
     Route: 048
     Dates: start: 2013

REACTIONS (2)
  - Fluid retention [Unknown]
  - Drug ineffective [Unknown]
